FAERS Safety Report 4556590-1 (Version None)
Quarter: 2005Q1

REPORT INFORMATION
  Report Type: 
  Country: None (occurrence: None)
  Receive Date: 20050118
  Receipt Date: 20050105
  Transmission Date: 20050727
  Serious: Yes (Other)
  Sender: FDA-Public Use
  Company Number: 2004204553US

PATIENT
  Age: 21 Year
  Sex: Female
  Weight: 59.86 kg

DRUGS (3)
  1. DEPO-PROVERA [Suspect]
     Indication: CONTRACEPTION
     Dosage: 1ST INJECTION EVERY 3 MONTHS
     Dates: start: 20030702, end: 20030703
  2. DEPO-PROVERA [Suspect]
     Indication: CONTRACEPTION
     Dosage: 1ST INJECTION EVERY 3 MONTHS
     Dates: start: 20030926, end: 20030926
  3. DEPO-PROVERA [Suspect]
     Indication: CONTRACEPTION
     Dosage: 1ST INJECTION EVERY 3 MONTHS
     Dates: start: 20031219, end: 20031219

REACTIONS (3)
  - DRUG EXPOSURE DURING PREGNANCY [None]
  - PREGNANCY WITH INJECTABLE CONTRACEPTIVE [None]
  - STILLBIRTH [None]
